FAERS Safety Report 8228106-X (Version None)
Quarter: 2012Q1

REPORT INFORMATION
  Report Type: 
  Country: None (occurrence: None)
  Receive Date: 20120322
  Receipt Date: 20120103
  Transmission Date: 20120608
  Serious: Yes (Life-Threatening, Hospitalization)
  Sender: FDA-Public Use
  Company Number: US-BRISTOL-MYERS SQUIBB COMPANY-16312357

PATIENT
  Age: 76 Year
  Sex: Male

DRUGS (7)
  1. ERBITUX [Suspect]
     Indication: HEAD AND NECK CANCER
     Dosage: NO OF DOSE:1.INFUSION
     Route: 042
     Dates: start: 20111220
  2. LISINOPRIL [Concomitant]
  3. SIMVASTATIN [Concomitant]
  4. ASPIRIN [Concomitant]
  5. OMEGA 3 FATTY ACID [Concomitant]
  6. COREG [Concomitant]
  7. FLOMAX [Concomitant]

REACTIONS (1)
  - INFUSION RELATED REACTION [None]
